FAERS Safety Report 10657503 (Version 1)
Quarter: 2014Q4

REPORT INFORMATION
  Report Type: Spontaneous
  Country: US (occurrence: None)
  Receive Date: 20141216
  Receipt Date: 20141216
  Transmission Date: 20150529
  Serious: Yes (Other)
  Sender: FDA-Public Use
  Company Number: None

PATIENT
  Age: 90 Year
  Sex: Female

DRUGS (1)
  1. IMBRUVICA [Suspect]
     Active Substance: IBRUTINIB
     Indication: LYMPHOMA
     Dosage: 140 MG TAKE 4 DAILY, DAILY ORAL
     Route: 048
     Dates: start: 20140829, end: 201412

REACTIONS (2)
  - Heart injury [None]
  - Coronary artery occlusion [None]

NARRATIVE: CASE EVENT DATE: 20141212
